FAERS Safety Report 9165154 (Version 1)
Quarter: 2013Q1

REPORT INFORMATION
  Report Type: Spontaneous
  Country: FR (occurrence: FR)
  Receive Date: 20130315
  Receipt Date: 20130315
  Transmission Date: 20140127
  Serious: Yes (Hospitalization)
  Sender: FDA-Public Use
  Company Number: FR-SANOFI-AVENTIS-2013SA022923

PATIENT
  Age: 56 Year
  Sex: Male

DRUGS (6)
  1. STILNOX [Suspect]
     Indication: PRODUCT USED FOR UNKNOWN INDICATION
     Route: 048
  2. MELPHALAN [Suspect]
     Indication: PLASMA CELL MYELOMA
     Route: 042
     Dates: start: 20130129, end: 20130129
  3. ZELITREX [Suspect]
     Indication: PROPHYLAXIS
     Dosage: STRENGTH: 500 MG
     Route: 048
     Dates: start: 20130129
  4. ZOPHREN [Suspect]
     Indication: PRODUCT USED FOR UNKNOWN INDICATION
     Dosage: STRENGTH: 8 MG/4 ML
     Route: 065
     Dates: start: 20130129, end: 20130129
  5. FUNGIZONE [Concomitant]
     Indication: ORAL FUNGAL INFECTION
  6. INEXIUM [Concomitant]
     Dosage: STRENGTH: 40 MG
     Route: 042

REACTIONS (5)
  - Epilepsy [Recovered/Resolved]
  - Confusional state [Recovered/Resolved]
  - Anterograde amnesia [Recovered/Resolved]
  - Loss of consciousness [Recovered/Resolved]
  - Fall [Recovered/Resolved]
